FAERS Safety Report 25707808 (Version 1)
Quarter: 2025Q3

REPORT INFORMATION
  Report Type: Spontaneous
  Country: US (occurrence: US)
  Receive Date: 20250820
  Receipt Date: 20250820
  Transmission Date: 20251020
  Serious: Yes (Hospitalization)
  Sender: AMGEN
  Company Number: US-AMGEN-USASP2025160650

PATIENT

DRUGS (1)
  1. TARLATAMAB [Suspect]
     Active Substance: TARLATAMAB
     Indication: Product used for unknown indication
     Route: 065

REACTIONS (6)
  - Unevaluable event [Unknown]
  - Cytokine release syndrome [Unknown]
  - Immune effector cell-associated neurotoxicity syndrome [Unknown]
  - Blood pressure systolic abnormal [Unknown]
  - Heart rate abnormal [Unknown]
  - Body temperature abnormal [Unknown]
